FAERS Safety Report 8110769 (Version 3)
Quarter: 2012Q4

REPORT INFORMATION
  Report Type: 
  Country: ES (occurrence: ES)
  Receive Date: 20110829
  Receipt Date: 20121217
  Transmission Date: 20130627
  Serious: Yes (Life-Threatening, Hospitalization)
  Sender: FDA-Public Use
  Company Number: PHHO2011ES14442

PATIENT
  Age: 47 Year
  Sex: Male

DRUGS (2)
  1. FTY [Suspect]
     Indication: MULTIPLE SCLEROSIS
     Dosage: 0.5 mg, QD
     Route: 048
     Dates: start: 20110124
  2. MEMANTINE [Suspect]
     Indication: COGNITIVE DISORDER
     Dosage: 20 mg, QD
     Route: 048
     Dates: start: 2008

REACTIONS (1)
  - Angina pectoris [Recovered/Resolved]
